FAERS Safety Report 9846347 (Version 1)
Quarter: 2013Q4

REPORT INFORMATION
  Report Type: Spontaneous
  Country: US (occurrence: None)
  Receive Date: 20131223
  Receipt Date: 20131223
  Transmission Date: 20140711
  Serious: Yes (Other)
  Sender: FDA-Public Use
  Company Number: CABO-1303314

PATIENT
  Age: 38 Year
  Sex: Female

DRUGS (3)
  1. COMETRIQ [Suspect]
     Indication: THYROID CANCER
     Route: 048
     Dates: start: 20130124, end: 20131023
  2. SYNTHROID (LEVOTHYROXINE SOIDIUM) [Concomitant]
  3. VIT D (ERGOCALCIFEROL) [Concomitant]

REACTIONS (6)
  - Pollakiuria [None]
  - Palmar-plantar erythrodysaesthesia syndrome [None]
  - Diarrhoea [None]
  - Weight decreased [None]
  - Decreased appetite [None]
  - Rash [None]
